FAERS Safety Report 16999575 (Version 2)
Quarter: 2019Q4

REPORT INFORMATION
  Report Type: Report from Study
  Country: US (occurrence: US)
  Receive Date: 20191106
  Receipt Date: 20191206
  Transmission Date: 20200122
  Serious: Yes (Other)
  Sender: FDA-Public Use
  Company Number: US-HORIZON-KRY-0858-2019

PATIENT
  Age: 63 Year
  Sex: Male

DRUGS (2)
  1. KRYSTEXXA [Suspect]
     Active Substance: PEGLOTICASE
     Indication: GOUT
     Dosage: 8MG IV Q2 WEEKS
     Route: 042
     Dates: start: 20190626
  2. COLCHICINE. [Concomitant]
     Active Substance: COLCHICINE

REACTIONS (5)
  - Peripheral swelling [Unknown]
  - Gout [Recovering/Resolving]
  - Pain in extremity [Recovering/Resolving]
  - Neuropathy peripheral [Unknown]
  - Skin ulcer [Recovering/Resolving]
